FAERS Safety Report 6749377-2 (Version None)
Quarter: 2010Q2

REPORT INFORMATION
  Report Type: 
  Country: None (occurrence: None)
  Receive Date: 20100601
  Receipt Date: 20100512
  Transmission Date: 20101027
  Serious: Yes (Other)
  Sender: FDA-Public Use
  Company Number: PHHY2010US31291

PATIENT
  Sex: Female

DRUGS (5)
  1. SANDOSTATIN LAR [Suspect]
     Indication: ACROMEGALY
  2. SYNTHROID [Concomitant]
  3. HYDROCORTISONE [Concomitant]
  4. LEXAPRO [Concomitant]
  5. ZOCOR [Concomitant]

REACTIONS (2)
  - BLISTER [None]
  - OROPHARYNGEAL BLISTERING [None]
